FAERS Safety Report 18648638 (Version 1)
Quarter: 2020Q4

REPORT INFORMATION
  Report Type: Spontaneous
  Country: FR (occurrence: FR)
  Receive Date: 20201222
  Receipt Date: 20201222
  Transmission Date: 20210114
  Serious: Yes (Hospitalization)
  Sender: FDA-Public Use
  Company Number: FR-BAXTER-2020BAX025673

PATIENT
  Age: 16 Year
  Sex: Female
  Weight: 53 kg

DRUGS (5)
  1. HOLOXAN 2000 MG, POUDRE POUR USAGE PARENTERAL [Suspect]
     Active Substance: IFOSFAMIDE
     Indication: OSTEOSARCOMA
     Route: 041
     Dates: start: 20190405, end: 20191024
  2. CELLTOP 100 MG/5 ML, SOLUTION INJECTABLE POUR PERFUSION [Suspect]
     Active Substance: ETOPOSIDE
     Indication: OSTEOSARCOMA
     Route: 041
     Dates: start: 20190405, end: 20191024
  3. CISPLATIN. [Suspect]
     Active Substance: CISPLATIN
     Indication: OSTEOSARCOMA METASTATIC
     Dosage: PER CYCLE
     Route: 041
     Dates: start: 20200703, end: 20200724
  4. METHOTREXATE. [Suspect]
     Active Substance: METHOTREXATE
     Indication: OSTEOSARCOMA
     Route: 041
     Dates: start: 20190314, end: 20191126
  5. DOXIL [Suspect]
     Active Substance: DOXORUBICIN HYDROCHLORIDE
     Indication: OSTEOSARCOMA
     Route: 041
     Dates: start: 20200703, end: 20200724

REACTIONS (1)
  - Renal tubular disorder [Recovered/Resolved]
